FAERS Safety Report 22078259 (Version 1)
Quarter: 2023Q1

REPORT INFORMATION
  Report Type: Spontaneous
  Country: CN (occurrence: CN)
  Receive Date: 20230309
  Receipt Date: 20230309
  Transmission Date: 20230418
  Serious: Yes (Other)
  Sender: FDA-Public Use
  Company Number: CN-009507513-2303CHN001446

PATIENT
  Age: 55 Year
  Sex: Female
  Weight: 64 kg

DRUGS (3)
  1. TEMOZOLOMIDE [Suspect]
     Active Substance: TEMOZOLOMIDE
     Indication: Glioblastoma
     Dosage: 75MG/M2, QD
     Route: 048
     Dates: start: 20221024, end: 20221205
  2. TEMOZOLOMIDE [Suspect]
     Active Substance: TEMOZOLOMIDE
     Dosage: 150MG/M2, QD
     Route: 048
     Dates: start: 20221206, end: 20221210
  3. TEMOZOLOMIDE [Suspect]
     Active Substance: TEMOZOLOMIDE
     Dosage: 200MG/M2, QD; CYCLES 2-6
     Route: 048
     Dates: start: 20230104

REACTIONS (2)
  - Ischaemic demyelination [Unknown]
  - Enlarged cerebral perivascular spaces [Unknown]

NARRATIVE: CASE EVENT DATE: 20221124
